FAERS Safety Report 4511402-7 (Version None)
Quarter: 2004Q4

REPORT INFORMATION
  Report Type: 
  Country: None (occurrence: None)
  Receive Date: 20041129
  Receipt Date: 20040617
  Transmission Date: 20050328
  Serious: Yes (Other)
  Sender: FDA-Public Use
  Company Number: US-BRISTOL-MYERS SQUIBB COMPANY-12622650

PATIENT
  Age: 20 Year
  Sex: Female

DRUGS (4)
  1. ABILIFY [Suspect]
     Indication: SCHIZOAFFECTIVE DISORDER
     Route: 048
     Dates: start: 20040309, end: 20040529
  2. ABILIFY [Suspect]
     Indication: HALLUCINATION
     Route: 048
     Dates: start: 20040309, end: 20040529
  3. ABILIFY [Suspect]
     Indication: DELIRIUM
     Route: 048
     Dates: start: 20040309, end: 20040529
  4. TOPAMAX [Concomitant]

REACTIONS (2)
  - PLATELET COUNT INCREASED [None]
  - WHITE BLOOD CELL COUNT INCREASED [None]
